FAERS Safety Report 6154514-7 (Version None)
Quarter: 2009Q2

REPORT INFORMATION
  Report Type: 
  Country: None (occurrence: None)
  Receive Date: 20090414
  Receipt Date: 20090406
  Transmission Date: 20091009
  Serious: Yes (Hospitalization, Other)
  Sender: FDA-Public Use
  Company Number: US-PURDUE-USA_2009_0037726

PATIENT
  Age: 43 Year
  Sex: Male

DRUGS (7)
  1. OXYCONTIN [Suspect]
     Indication: FIBROMYALGIA
     Dosage: 320 MG, SEE TEXT
  2. CRESTOR [Concomitant]
     Indication: BLOOD CHOLESTEROL INCREASED
  3. HYDROCODONE BITARTRATE [Concomitant]
     Indication: BREAKTHROUGH PAIN
     Dosage: 5 MG, PRN
  4. ANTIHYPERTENSIVES [Concomitant]
     Indication: HYPERTENSION
  5. BETA BLOCKING AGENTS [Concomitant]
  6. CORONARY VASODILATORS [Concomitant]
  7. ANXIOLYTICS [Concomitant]

REACTIONS (12)
  - BLOOD CREATININE ABNORMAL [None]
  - DEHYDRATION [None]
  - DELIRIUM [None]
  - DRUG TOLERANCE [None]
  - HICCUPS [None]
  - INADEQUATE ANALGESIA [None]
  - OEDEMA PERIPHERAL [None]
  - PNEUMONIA STAPHYLOCOCCAL [None]
  - RASH [None]
  - RENAL FAILURE [None]
  - TOOTH ABSCESS [None]
  - VOMITING [None]
